FAERS Safety Report 19780527 (Version 5)
Quarter: 2022Q2

REPORT INFORMATION
  Report Type: Other
  Country: DE (occurrence: None)
  Receive Date: 20210902
  Receipt Date: 20220509
  Transmission Date: 20220721
  Serious: Yes (Hospitalization, Congenital Anomaly)
  Sender: FDA-Public Use
  Company Number: DE-ROCHE-2802406

PATIENT
  Age: 0 Year
  Sex: Male
  Weight: 8.9 kg

DRUGS (17)
  1. OCRELIZUMAB [Suspect]
     Active Substance: OCRELIZUMAB
     Indication: Product used for unknown indication
     Route: 050
     Dates: start: 20200122
  2. OCRELIZUMAB [Suspect]
     Active Substance: OCRELIZUMAB
     Route: 050
     Dates: start: 20200207, end: 20200207
  3. ACETAMINOPHEN [Concomitant]
     Active Substance: ACETAMINOPHEN
     Dates: start: 20200122, end: 20200122
  4. ACETAMINOPHEN [Concomitant]
     Active Substance: ACETAMINOPHEN
     Dates: start: 20200207, end: 20200207
  5. ACETAMINOPHEN [Concomitant]
     Active Substance: ACETAMINOPHEN
     Dates: start: 20200914, end: 20200917
  6. DIMETHINDENE [Concomitant]
     Active Substance: DIMETHINDENE
     Dates: start: 20200122, end: 20200122
  7. DIMETHINDENE [Concomitant]
     Active Substance: DIMETHINDENE
     Dates: start: 20200207, end: 20200207
  8. CORTISONE [Concomitant]
     Active Substance: CORTISONE
     Dates: start: 20200122, end: 20200122
  9. CORTISONE [Concomitant]
     Active Substance: CORTISONE
     Dates: start: 20200207, end: 20200207
  10. FOLIC ACID [Concomitant]
     Active Substance: FOLIC ACID
     Dates: start: 20200602, end: 20200818
  11. FOLIC ACID [Concomitant]
     Active Substance: FOLIC ACID
     Dates: start: 20200819, end: 20210201
  12. HUMAN ROTAVIRUS A [Concomitant]
     Active Substance: HUMAN ROTAVIRUS A
     Dosage: SUBSEQUENT DOSE WAS RECEIVED ON 03-MAY-2021.
     Dates: start: 20210329
  13. DIPHTHERIA AND TETANUS TOXOIDS AND ACELLULAR PERTUSSIS VACCINE ADSORBE [Concomitant]
     Active Substance: DIPHTHERIA AND TETANUS TOXOIDS AND ACELLULAR PERTUSSIS VACCINE ADSORBED
     Dosage: SUBSEQUENT DOSE WAS RECEIVED ON 07/JUL/2021
     Dates: start: 20210608
  14. HAEMOPHILUS INFLUENZAE TYPE B [Concomitant]
     Active Substance: HAEMOPHILUS INFLUENZAE TYPE B
     Dosage: SUBSEQUENT DOSE WAS RECEIVED ON 07/JUL/2021
     Dates: start: 20210608
  15. HEPATITIS B VIRUS VACCINE [Concomitant]
     Active Substance: HEPATITIS B VIRUS VACCINE
     Dosage: SUBSEQUENT DOSE WAS RECEIVED ON 07/JUL/2021
     Dates: start: 20210608
  16. PCV13 VACCINE [Concomitant]
     Dates: start: 20210608
  17. POLIOMYELITIS VACCINE [Concomitant]
     Active Substance: POLIOMYELITIS VACCINE
     Dosage: SUBSEQUENT DOSE WAS RECEIVED ON 07/JUL/2021
     Dates: start: 20210608

REACTIONS (4)
  - Ureteric dilatation [Not Recovered/Not Resolved]
  - Urinary tract infection [Recovered/Resolved]
  - Foetal exposure during pregnancy [Unknown]
  - Pyelonephritis [Recovered/Resolved]

NARRATIVE: CASE EVENT DATE: 20210216
